FAERS Safety Report 5060762-X (Version None)
Quarter: 2006Q3

REPORT INFORMATION
  Report Type: 
  Country: None (occurrence: None)
  Receive Date: 20060725
  Receipt Date: 20060719
  Transmission Date: 20061208
  Serious: Yes (Other)
  Sender: FDA-Public Use
  Company Number: FR-AVENTIS-200613951EU

PATIENT
  Age: 78 Year
  Sex: Female

DRUGS (55)
  1. ENOXAPARIN [Suspect]
     Indication: THROMBOSIS PROPHYLAXIS
     Route: 058
     Dates: start: 20060625
  2. ASPIRIN [Concomitant]
     Indication: CEREBROVASCULAR ACCIDENT
     Route: 048
     Dates: start: 20020101, end: 20060625
  3. ASPIRIN [Concomitant]
     Indication: PROPHYLAXIS
     Route: 048
     Dates: start: 20020101, end: 20060625
  4. FLECAINIDE ACETATE [Concomitant]
     Indication: ARRHYTHMIA
     Dates: start: 19980101, end: 20060625
  5. CIBACENE [Concomitant]
     Indication: HYPERTENSION
     Dates: start: 19980101, end: 20060629
  6. ALPRESS [Concomitant]
     Indication: HYPERTENSION
     Dates: start: 19980101, end: 20060629
  7. ALPRESS [Concomitant]
     Dates: start: 20060630, end: 20060630
  8. ALPRESS [Concomitant]
     Dates: start: 20060701, end: 20060701
  9. DETRUSITOL [Concomitant]
     Indication: URINARY INCONTINENCE
     Dates: start: 20050501, end: 20060628
  10. DETRUSITOL [Concomitant]
     Dates: start: 20060629, end: 20060629
  11. DETRUSITOL [Concomitant]
     Dates: start: 20060630, end: 20060630
  12. DETRUSITOL [Concomitant]
     Dates: start: 20060701, end: 20060705
  13. DETRUSITOL [Concomitant]
     Dates: start: 20060706
  14. PIASCLEDINE [Concomitant]
     Indication: OSTEOARTHRITIS
     Dates: start: 20010101
  15. OMEPRAZOLE [Concomitant]
     Indication: PROPHYLAXIS AGAINST GASTROINTESTINAL ULCER
     Route: 042
     Dates: start: 19930101, end: 20060702
  16. OMEPRAZOLE [Concomitant]
     Route: 042
     Dates: start: 20060703, end: 20060703
  17. DAFLON [Concomitant]
     Indication: VENOUS INSUFFICIENCY
     Dates: start: 19900101, end: 20060628
  18. DAFLON [Concomitant]
     Dates: start: 19900629, end: 20060629
  19. DAFLON [Concomitant]
     Dates: start: 20060630, end: 20060630
  20. DAFLON [Concomitant]
     Dates: start: 20060703, end: 20060704
  21. DAFLON [Concomitant]
     Dates: start: 20060705
  22. VASTAREL [Concomitant]
     Indication: VERTIGO
     Dates: start: 19900101, end: 20060628
  23. VASTAREL [Concomitant]
     Dates: start: 20060629, end: 20060629
  24. VASTAREL [Concomitant]
     Dates: start: 20060701, end: 20060701
  25. VASTAREL [Concomitant]
     Dates: start: 20060702, end: 20060702
  26. SPASFON [Concomitant]
     Indication: COLITIS
     Route: 048
     Dates: start: 20050101, end: 20060630
  27. SPASFON [Concomitant]
     Indication: PROPHYLAXIS
     Route: 048
     Dates: start: 20050101, end: 20060630
  28. SPASFON [Concomitant]
     Route: 042
     Dates: start: 20060701, end: 20060704
  29. SPASFON [Concomitant]
     Route: 048
     Dates: start: 20060705
  30. SPASMINE [Concomitant]
     Indication: INSOMNIA
     Dates: start: 20050101, end: 20060628
  31. SPASMINE [Concomitant]
     Indication: PROPHYLAXIS
     Dates: start: 20050101, end: 20060628
  32. SPASMINE [Concomitant]
     Dates: start: 20060629, end: 20060629
  33. SPASMINE [Concomitant]
     Dates: start: 20060630, end: 20060630
  34. SPASMINE [Concomitant]
     Dates: start: 20060702, end: 20060702
  35. LECTIL [Concomitant]
     Indication: VERTIGO
     Dates: start: 20050101, end: 20060630
  36. LECTIL [Concomitant]
     Dates: start: 20060702, end: 20060703
  37. LECTIL [Concomitant]
     Dates: start: 20060704, end: 20060704
  38. TARDYFERON [Concomitant]
     Indication: ANAEMIA
     Dates: start: 20060529, end: 20060625
  39. TARDYFERON [Concomitant]
     Indication: PROPHYLAXIS
     Dates: start: 20060529, end: 20060625
  40. PRIMPERAN TAB [Concomitant]
     Indication: NAUSEA
     Route: 048
     Dates: start: 20060627, end: 20060627
  41. PRIMPERAN TAB [Concomitant]
     Indication: VOMITING
     Route: 048
     Dates: start: 20060627, end: 20060627
  42. NORMACOL [Concomitant]
     Indication: CONSTIPATION
     Dates: start: 20060628, end: 20060629
  43. TOPALGIC [Concomitant]
     Indication: PAIN
     Dates: start: 20060628, end: 20060629
  44. DAFALGAN [Concomitant]
     Indication: PAIN
     Dates: start: 20060628, end: 20060702
  45. ACETAMINOPHEN [Concomitant]
     Indication: PAIN
     Dates: start: 20060627, end: 20060627
  46. COMPENSAL [Concomitant]
     Indication: DEHYDRATION
     Dates: start: 20060626, end: 20060626
  47. CORDARONE [Concomitant]
     Indication: PROPHYLAXIS
     Dates: start: 19980101, end: 20060629
  48. CORDARONE [Concomitant]
     Indication: TACHYCARDIA
     Dates: start: 19980101, end: 20060629
  49. CORDARONE [Concomitant]
     Dates: start: 20060630, end: 20060630
  50. CORDARONE [Concomitant]
     Dates: start: 20060701
  51. FURADANTIN [Concomitant]
     Indication: CYSTITIS
     Dates: start: 20060614, end: 20060623
  52. LEXOMIL [Concomitant]
     Indication: ANXIETY
     Dates: start: 20060628, end: 20060628
  53. MAGNESIUM [Concomitant]
     Indication: BLOOD MAGNESIUM DECREASED
     Dates: start: 20060627, end: 20060628
  54. MAGNESIUM [Concomitant]
     Dates: start: 20060630, end: 20060703
  55. MAGNESIUM [Concomitant]
     Dates: start: 20060705

REACTIONS (2)
  - INTESTINAL OBSTRUCTION [None]
  - PANCREATITIS [None]
